FAERS Safety Report 6181651-3 (Version None)
Quarter: 2009Q2

REPORT INFORMATION
  Report Type: 
  Country: None (occurrence: None)
  Receive Date: 20090506
  Receipt Date: 20080610
  Transmission Date: 20091009
  Serious: Yes (Other)
  Sender: FDA-Public Use
  Company Number: A0782596A

PATIENT
  Sex: Female
  Weight: 52 kg

DRUGS (6)
  1. LAPATINIB [Suspect]
     Indication: BREAST CANCER
     Dosage: 1500MG PER DAY
     Route: 048
     Dates: start: 20080428
  2. PACLITAXEL [Suspect]
     Indication: BREAST CANCER
     Dosage: 80MGM2 CYCLIC
     Route: 042
     Dates: start: 20080428
  3. LORAZEPAM [Concomitant]
     Indication: INSOMNIA
     Dosage: 2MG PER DAY
     Route: 048
     Dates: start: 19980101
  4. RANITIDINE [Concomitant]
     Dosage: 150MG TWICE PER DAY
     Route: 048
     Dates: start: 20080428
  5. METOCLOPRAMIDE [Concomitant]
     Dosage: 40DROP AS REQUIRED
     Route: 048
     Dates: start: 20080429
  6. LOPERAMIDE HCL [Concomitant]
     Dosage: 2MG TWELVE TIMES PER DAY
     Route: 048
     Dates: start: 20080602

REACTIONS (1)
  - NEUTROPENIA [None]
